FAERS Safety Report 6228638-X (Version None)
Quarter: 2009Q2

REPORT INFORMATION
  Report Type: 
  Country: None (occurrence: None)
  Receive Date: 20090612
  Receipt Date: 20090602
  Transmission Date: 20091009
  Serious: Yes (Hospitalization)
  Sender: FDA-Public Use
  Company Number: FR-SANOFI-SYNTHELABO-A02200901387

PATIENT
  Sex: Male

DRUGS (8)
  1. FLUDEX [Concomitant]
     Indication: HYPERTENSION
     Dosage: UNK
     Route: 048
     Dates: start: 20071227, end: 20080117
  2. AUGMENTIN [Suspect]
     Indication: SINUSITIS
     Dosage: UNK
     Route: 065
     Dates: start: 20071231, end: 20080118
  3. OFLOXACINE [Suspect]
     Indication: SINUSITIS
     Dosage: UNK
     Route: 065
     Dates: start: 20071231, end: 20080118
  4. ACTISKENAN [Suspect]
     Indication: PAIN
     Route: 048
     Dates: start: 20080111, end: 20080122
  5. AERIUS [Suspect]
     Indication: PRURITUS GENERALISED
     Route: 048
     Dates: start: 20080114, end: 20080122
  6. SEROPRAM [Suspect]
     Indication: DEPRESSION
     Route: 048
     Dates: start: 20080117, end: 20080122
  7. LYRICA [Suspect]
     Indication: NEURALGIA
     Dosage: FROM 50 MG TO 150 MG PROGRESSIVELY
     Route: 048
     Dates: start: 20080111, end: 20080122
  8. XATRAL [Suspect]
     Indication: DYSURIA
     Route: 048
     Dates: start: 20071220

REACTIONS (1)
  - AGRANULOCYTOSIS [None]
